FAERS Safety Report 8014251-0 (Version None)
Quarter: 2011Q4

REPORT INFORMATION
  Report Type: 
  Country: None (occurrence: None)
  Receive Date: 20111229
  Receipt Date: 20110913
  Transmission Date: 20120403
  Serious: Yes (Other)
  Sender: FDA-Public Use
  Company Number: JP-GLAXOSMITHKLINE-B0747893A

PATIENT
  Age: 51 Year
  Sex: Female

DRUGS (6)
  1. LORAZEPAM [Concomitant]
     Route: 048
     Dates: start: 20110829
  2. CLONAZEPAM [Suspect]
     Indication: DEPRESSION
     Dosage: 4.5MG PER DAY
     Route: 048
     Dates: start: 20110801, end: 20110921
  3. ZYPREXA [Suspect]
     Indication: DEPRESSION
     Dosage: 5MG PER DAY
     Route: 048
     Dates: start: 20110801
  4. PAXIL [Suspect]
     Dosage: 20MG PER DAY
     Route: 048
     Dates: start: 20110824, end: 20110828
  5. PAXIL [Suspect]
     Dosage: 15MG PER DAY
     Route: 048
     Dates: start: 20110829
  6. PAXIL [Suspect]
     Indication: DEPRESSION
     Dosage: 50MG PER DAY
     Route: 048
     Dates: start: 20110801, end: 20110823

REACTIONS (6)
  - HEPATIC FUNCTION ABNORMAL [None]
  - ASPARTATE AMINOTRANSFERASE INCREASED [None]
  - BLOOD ALKALINE PHOSPHATASE INCREASED [None]
  - ALANINE AMINOTRANSFERASE INCREASED [None]
  - GAMMA-GLUTAMYLTRANSFERASE INCREASED [None]
  - BLOOD LACTATE DEHYDROGENASE INCREASED [None]
